FAERS Safety Report 6264227-9 (Version None)
Quarter: 2009Q3

REPORT INFORMATION
  Report Type: 
  Country: None (occurrence: None)
  Receive Date: 20090706
  Receipt Date: 20090209
  Transmission Date: 20100115
  Serious: Yes (Death)
  Sender: FDA-Public Use
  Company Number: 2009020018

PATIENT
  Age: 24 Year
  Sex: Female

DRUGS (3)
  1. SOMA [Suspect]
     Indication: PAIN
     Dosage: 1050 MG (350 MG, 3 IN 1 D), ORAL
     Route: 048
     Dates: start: 20070501
  2. LORCET-HD [Concomitant]
  3. XANAX [Concomitant]

REACTIONS (2)
  - DRUG TOXICITY [None]
  - OVERDOSE [None]
